FAERS Safety Report 16559673 (Version 7)
Quarter: 2020Q2

REPORT INFORMATION
  Report Type: Spontaneous
  Country: US (occurrence: US)
  Receive Date: 20190711
  Receipt Date: 20200521
  Transmission Date: 20200713
  Serious: Yes (Other)
  Sender: FDA-Public Use
  Company Number: US-PFIZER INC-2019292306

PATIENT
  Age: 61 Year
  Sex: Female
  Weight: 76 kg

DRUGS (49)
  1. XELJANZ XR [Suspect]
     Active Substance: TOFACITINIB CITRATE
     Indication: RHEUMATOID ARTHRITIS
     Dosage: 11 MG, 1X/DAY
     Route: 048
     Dates: start: 20190606, end: 201906
  2. XELJANZ XR [Suspect]
     Active Substance: TOFACITINIB CITRATE
     Dosage: 11 MG, 1X/DAY
     Dates: start: 20190627, end: 20190630
  3. XELJANZ XR [Suspect]
     Active Substance: TOFACITINIB CITRATE
     Dosage: 11 MG, DAILY
     Route: 048
     Dates: start: 201906
  4. HYDROXYCHLOROQUINE [Concomitant]
     Active Substance: HYDROXYCHLOROQUINE
     Dosage: 200 MG, 2X/DAY
     Dates: start: 20160419
  5. CYCLOBENZAPRINE. [Concomitant]
     Active Substance: CYCLOBENZAPRINE
     Dosage: 10 MG, AS NEEDED (1 AT NIGHT)
  6. VITAMIN D3 [Concomitant]
     Active Substance: CHOLECALCIFEROL
     Dosage: 4000 IU, 2X/DAY
  7. METHOTREXATE. [Concomitant]
     Active Substance: METHOTREXATE
     Dosage: 17.5 MG, WEEKLY
     Dates: start: 20160727, end: 20190519
  8. METHOTREXATE. [Concomitant]
     Active Substance: METHOTREXATE
     Dosage: 17.5 MG, WEEKLY
     Dates: start: 20190630
  9. MELOXICAM. [Concomitant]
     Active Substance: MELOXICAM
     Dosage: 15 MG, 1X/DAY
     Dates: start: 20190211, end: 20190508
  10. PHENTERMINE. [Concomitant]
     Active Substance: PHENTERMINE
     Dosage: 37.5 MG, UNK (1/2-1XD)
     Dates: end: 20181107
  11. PHENTERMINE. [Concomitant]
     Active Substance: PHENTERMINE
     Dosage: 37.5 MG, UNK (1/2-1XD)
     Dates: start: 20190207
  12. FOLIC ACID. [Concomitant]
     Active Substance: FOLIC ACID
     Dosage: 1 MG, 2X/DAY
     Dates: start: 20160419
  13. HYDROCHLOROTHIAZIDE. [Concomitant]
     Active Substance: HYDROCHLOROTHIAZIDE
     Dosage: 25 MG, 1X/DAY
  14. ESTRING [Concomitant]
     Active Substance: ESTRADIOL
     Dosage: 2 MG, UNK (1X90 DAYS)
  15. VITAMIN B12 [Concomitant]
     Active Substance: CYANOCOBALAMIN
     Indication: NEUROPATHY PERIPHERAL
     Dosage: 600 UG, AS NEEDED
  16. TRAZODONE [Concomitant]
     Active Substance: TRAZODONE HYDROCHLORIDE
     Dosage: 150 MG, 1X/DAY (1 AT NIGHT)
  17. METHOCARBAMOL. [Concomitant]
     Active Substance: METHOCARBAMOL
     Dosage: 750 MG, AS NEEDED (L-3XD )
  18. TESTOSTERONE. [Concomitant]
     Active Substance: TESTOSTERONE
     Dosage: UNK (30MG/15MLS/4 DAYS PER WEEK)
  19. KERYDIN [Concomitant]
     Active Substance: TAVABOROLE
     Dosage: UNK UNK, 1X/DAY
     Route: 061
  20. OSPHENA [Concomitant]
     Active Substance: OSPEMIFENE
     Dosage: 60 MG, 1X/DAY
     Dates: end: 20190623
  21. ABATACEPT [Concomitant]
     Active Substance: ABATACEPT
     Dosage: 125 MG, WEEKLY
     Dates: end: 20190519
  22. KETOROLAC [Concomitant]
     Active Substance: KETOROLAC TROMETHAMINE
     Dosage: UNK (2XD-2 WEEKS)
  23. KONSYL [PSYLLIUM HYDROPHILIC MUCILLOID] [Concomitant]
     Dosage: UNK (40G DIETARY FIBER + 25G SOLUBLE FIBER; 40G; 1XD)
  24. GELATIN [Concomitant]
     Active Substance: GELATIN
     Dosage: 7.2 G, 1X/DAY
  25. CAFFEINE. [Concomitant]
     Active Substance: CAFFEINE
     Dosage: 200 MG, 1X/DAY
  26. DOCUSATE SODIUM. [Concomitant]
     Active Substance: DOCUSATE SODIUM
     Dosage: 100 MG, 1X/DAY
  27. OPTIMIZED FOLATE [Concomitant]
     Dosage: 1000 UG, 1X/DAY
  28. XELJANZ XR [Suspect]
     Active Substance: TOFACITINIB CITRATE
     Dosage: 11 MG, 1X/DAY
     Route: 048
     Dates: start: 2019, end: 2019
  29. BUSPIRONE [Concomitant]
     Active Substance: BUSPIRONE HYDROCHLORIDE
     Dosage: 10 MG, 3X/DAY
  30. POTASSIUM CHLORIDE. [Concomitant]
     Active Substance: POTASSIUM CHLORIDE
     Dosage: 10 MEQ, 1X/DAY
  31. MONTELUKAST [Concomitant]
     Active Substance: MONTELUKAST SODIUM
     Dosage: 10 MG, 1X/DAY (AT NIGHT)
  32. CALCIUM [Concomitant]
     Active Substance: CALCIUM
     Dosage: UNK
  33. VITAMIN D3 [Concomitant]
     Active Substance: CHOLECALCIFEROL
     Dosage: UNK
  34. LISINOPRIL. [Concomitant]
     Active Substance: LISINOPRIL
     Dosage: 20 MG, 1X/DAY
  35. TRAMADOL. [Concomitant]
     Active Substance: TRAMADOL
     Dosage: 50 MG, AS NEEDED (1 AT NIGHT)
  36. MYRBETRIQ [Concomitant]
     Active Substance: MIRABEGRON
     Dosage: 25 MG, 1X/DAY (1 AT NIGHT)
  37. UBIQUINOL CO Q10 [Concomitant]
     Active Substance: UBIQUINOL
     Dosage: 400 MG, 1X/DAY
  38. OMEGA 3 FISH OIL [DOCOSAHEXAENOIC ACID;EICOSAPENTAENOIC ACID] [Concomitant]
     Dosage: 1200 MG, 1X/DAY
  39. LICORICE ROOT [Concomitant]
     Active Substance: LICORICE
     Dosage: 600 MG, DAILY (300MG; 2 AT NOON)
  40. FISH OIL [Concomitant]
     Active Substance: FISH OIL
     Dosage: UNK
  41. METOPROLOL. [Concomitant]
     Active Substance: METOPROLOL
     Dosage: UNK
  42. XELJANZ XR [Suspect]
     Active Substance: TOFACITINIB CITRATE
     Dosage: 11 MG, 1X/DAY
     Dates: start: 20190705, end: 2019
  43. XELJANZ XR [Suspect]
     Active Substance: TOFACITINIB CITRATE
     Dosage: 11 MG, DAILY
     Route: 048
     Dates: start: 2019, end: 2019
  44. LISINOPRIL. [Concomitant]
     Active Substance: LISINOPRIL
     Dosage: UNK
     Dates: start: 20190219
  45. DICLOFENAC [Concomitant]
     Active Substance: DICLOFENAC
     Dosage: UNK UNK, AS NEEDED
  46. MELOXICAM. [Concomitant]
     Active Substance: MELOXICAM
     Dosage: 15 MG, 1X/DAY
     Dates: start: 20181107, end: 20190203
  47. FLUTICASONE. [Concomitant]
     Active Substance: FLUTICASONE
     Dosage: 50 UG, UNK (SPRAY/LEAC H LXD)
  48. MIRALAX [Concomitant]
     Active Substance: POLYETHYLENE GLYCOL 3350
     Dosage: UNK, 1X/DAY
  49. PRILOSEC [Concomitant]
     Active Substance: OMEPRAZOLE MAGNESIUM
     Dosage: UNK

REACTIONS (12)
  - Arrhythmia [Unknown]
  - Hepatic enzyme increased [Unknown]
  - Eye inflammation [Recovered/Resolved]
  - Neuralgia [Unknown]
  - Stomatitis [Unknown]
  - Muscle spasms [Unknown]
  - Malaise [Unknown]
  - Alopecia [Unknown]
  - Herpes virus infection [Recovered/Resolved]
  - Hypoaesthesia [Unknown]
  - Herpes virus infection [Unknown]
  - Paraesthesia [Unknown]

NARRATIVE: CASE EVENT DATE: 20190630
